FAERS Safety Report 7336186-9 (Version None)
Quarter: 2011Q1

REPORT INFORMATION
  Report Type: 
  Country: None (occurrence: None)
  Receive Date: 20110302
  Receipt Date: 20110302
  Transmission Date: 20110831
  Serious: Yes (Life-Threatening)
  Sender: FDA-Public Use
  Company Number: None

PATIENT
  Age: 59 Year
  Sex: Female
  Weight: 65.7716 kg

DRUGS (2)
  1. CLINDAMYCIN HCL [Suspect]
     Indication: ENDODONTIC PROCEDURE
     Dosage: 150 MG. 4 TIMES PER DAY PO
     Route: 048
     Dates: start: 20110124, end: 20110202
  2. CLINDAMYCIN HCL [Suspect]
     Indication: GINGIVAL INFECTION
     Dosage: 150 MG. 4 TIMES PER DAY PO
     Route: 048
     Dates: start: 20110124, end: 20110202

REACTIONS (5)
  - DEHYDRATION [None]
  - CLOSTRIDIUM DIFFICILE COLITIS [None]
  - GASTROINTESTINAL INFECTION [None]
  - INFLUENZA LIKE ILLNESS [None]
  - FLUSHING [None]
